FAERS Safety Report 14009076 (Version 6)
Quarter: 2018Q3

REPORT INFORMATION
  Report Type: Report from Study
  Country: None (occurrence: CL)
  Receive Date: 20170925
  Receipt Date: 20180823
  Transmission Date: 20181010
  Serious: Yes (Other)
  Sender: FDA-Public Use
  Company Number: CL-ABBVIE-17K-034-2111138-00

PATIENT
  Age: 43 Year
  Sex: Female

DRUGS (3)
  1. HUMIRA [Suspect]
     Active Substance: ADALIMUMAB
     Indication: UVEITIS
  2. HUMIRA [Suspect]
     Active Substance: ADALIMUMAB
     Indication: ANKYLOSING SPONDYLITIS
     Route: 058
     Dates: start: 20170530
  3. HUMIRA [Suspect]
     Active Substance: ADALIMUMAB
     Indication: ANKYLOSING SPONDYLITIS
     Route: 058

REACTIONS (6)
  - Glaucoma [Not Recovered/Not Resolved]
  - Nausea [Not Recovered/Not Resolved]
  - Vomiting [Not Recovered/Not Resolved]
  - Eye swelling [Not Recovered/Not Resolved]
  - Injection site pruritus [Not Recovered/Not Resolved]
  - Emotional disorder [Unknown]

NARRATIVE: CASE EVENT DATE: 20170530
